FAERS Safety Report 17278391 (Version 1)
Quarter: 2020Q1

REPORT INFORMATION
  Report Type: Report from Study
  Country: KW (occurrence: KW)
  Receive Date: 20200116
  Receipt Date: 20200116
  Transmission Date: 20200409
  Serious: Yes (Hospitalization, Other)
  Sender: FDA-Public Use
  Company Number: KW-ASTRAZENECA-2019SF89699

PATIENT
  Age: 86 Day
  Sex: Male
  Weight: 3.6 kg

DRUGS (4)
  1. CAPOTEN [Concomitant]
     Active Substance: CAPTOPRIL
     Indication: CARDIAC DISORDER
  2. SYNAGIS [Suspect]
     Active Substance: PALIVIZUMAB
     Indication: ANTIVIRAL PROPHYLAXIS
     Route: 030
     Dates: start: 20191030
  3. LASIX [Concomitant]
     Active Substance: FUROSEMIDE
     Indication: CARDIAC DISORDER
  4. ALDACTONE [Concomitant]
     Active Substance: SPIRONOLACTONE
     Indication: CARDIAC DISORDER

REACTIONS (4)
  - Tachypnoea [Recovering/Resolving]
  - Flatulence [Recovered/Resolved]
  - Inguinal hernia [Recovered/Resolved]
  - Cardiomegaly [Recovering/Resolving]

NARRATIVE: CASE EVENT DATE: 20191204
